FAERS Safety Report 7277205-8 (Version None)
Quarter: 2011Q1

REPORT INFORMATION
  Report Type: 
  Country: None (occurrence: None)
  Receive Date: 20110202
  Receipt Date: 20110202
  Transmission Date: 20110831
  Serious: Yes (Life-Threatening)
  Sender: FDA-Public Use
  Company Number: None

PATIENT
  Age: 39 Year
  Sex: Female

DRUGS (2)
  1. SODIUM FERRIC GLUCONATE COMPLEX [Suspect]
     Indication: IRON DEFICIENCY ANAEMIA
     Dosage: 125 MG ONCE IV DRIP
     Route: 041
     Dates: start: 20110112, end: 20110112
  2. RED BLOOD CELLS [Concomitant]

REACTIONS (8)
  - BACK PAIN [None]
  - CHEST PAIN [None]
  - FLUSHING [None]
  - TACHYCARDIA [None]
  - AGITATION [None]
  - INFUSION RELATED REACTION [None]
  - DYSPNOEA [None]
  - BLOOD PRESSURE INCREASED [None]
